FAERS Safety Report 7461552-0 (Version None)
Quarter: 2011Q2

REPORT INFORMATION
  Report Type: 
  Country: None (occurrence: None)
  Receive Date: 20110428
  Receipt Date: 20110411
  Transmission Date: 20111010
  Serious: Yes (Other)
  Sender: FDA-Public Use
  Company Number: JPI-P-014549

PATIENT
  Age: 73 Year
  Sex: Male
  Weight: 83.9154 kg

DRUGS (7)
  1. FINASTERIDE [Concomitant]
  2. TERAZOSIN HCL [Concomitant]
  3. MODAFINIL [Concomitant]
  4. AMIODARONE HCL [Concomitant]
  5. XYREM [Suspect]
     Indication: CATAPLEXY
     Dosage: ORAL 7.5 MG (3.75 GM, 2 IN 1 D),ORAL
     Route: 048
     Dates: start: 20031222
  6. LISINOPRIL [Concomitant]
  7. HYDROCHLOROTHIAZIDE [Concomitant]

REACTIONS (2)
  - DIZZINESS [None]
  - CORONARY ARTERY OCCLUSION [None]
